FAERS Safety Report 17638111 (Version 2)
Quarter: 2020Q2

REPORT INFORMATION
  Report Type: Report from Study
  Country: NO (occurrence: NO)
  Receive Date: 20200407
  Receipt Date: 20200409
  Transmission Date: 20200713
  Serious: Yes (Life-Threatening, Other)
  Sender: FDA-Public Use
  Company Number: NO-PFIZER INC-2011113835

PATIENT
  Age: 15 Year
  Sex: Female

DRUGS (5)
  1. METHOTREXATE SODIUM. [Suspect]
     Active Substance: METHOTREXATE SODIUM
     Indication: OSTEOSARCOMA
     Dosage: 12 G/M2 IN A 4-HOUR INFUSION, CYCLIC
     Route: 041
  2. CISPLATIN. [Suspect]
     Active Substance: CISPLATIN
     Indication: OSTEOSARCOMA
     Dosage: 90 MG/M2 A 48-HOUR CONTINUOUS INFUSION, CYCLIC
     Route: 041
  3. LEUCOVORIN [FOLINIC ACID] [Concomitant]
     Active Substance: LEUCOVORIN
     Indication: PROPHYLAXIS
     Dosage: 8 MG/M2 EVERY 6TH HOUR, BEGINNING 24 H AFTER STARTING MTX
     Route: 041
  4. IFOSFAMIDE. [Suspect]
     Active Substance: IFOSFAMIDE
     Indication: OSTEOSARCOMA
     Dosage: 2 G/M2 /DAY FOR 5 DAYS FOR EACH CYCLE
     Route: 041
  5. DOXORUBICIN HCL [Suspect]
     Active Substance: DOXORUBICIN HYDROCHLORIDE
     Indication: OSTEOSARCOMA
     Dosage: 75 MG/M2 4-HOUR CONTINUOUS INFUSION, CYCLIC
     Route: 041

REACTIONS (2)
  - Cardiac function disturbance postoperative [Not Recovered/Not Resolved]
  - Cardiotoxicity [Not Recovered/Not Resolved]
